FAERS Safety Report 8605139-2 (Version None)
Quarter: 2012Q3

REPORT INFORMATION
  Report Type: 
  Country: None (occurrence: None)
  Receive Date: 20120820
  Receipt Date: 20120809
  Transmission Date: 20120928
  Serious: No
  Sender: FDA-Public Use
  Company Number: US-BAYER-2012-082403

PATIENT
  Age: 26 Year
  Sex: Female

DRUGS (3)
  1. DROSPIRENONE AND ETHINYL ESTRADIOL [Suspect]
  2. PRISTIQ [Concomitant]
  3. YAZ [Suspect]
     Indication: CONTRACEPTION

REACTIONS (1)
  - THROMBOPHLEBITIS SUPERFICIAL [None]
